FAERS Safety Report 24736019 (Version 1)
Quarter: 2024Q4

REPORT INFORMATION
  Report Type: Report from Study
  Country: US (occurrence: US)
  Receive Date: 20241216
  Receipt Date: 20241216
  Transmission Date: 20250115
  Serious: Yes (Hospitalization)
  Sender: ROCHE
  Company Number: US-ROCHE-3224285

PATIENT
  Age: 76 Year
  Sex: Female

DRUGS (5)
  1. PULMOZYME [Suspect]
     Active Substance: DORNASE ALFA
     Indication: Cystic fibrosis
     Dosage: AMPUL , NEBULIZE 1 VIAL TWICE A DAY
     Route: 065
  2. PULMOZYME [Suspect]
     Active Substance: DORNASE ALFA
     Indication: Rhinitis
     Dosage: NEBULIZE THE CONTENTS OF 1 VIAL(S) TWICE A DAY, SOLUTION NON ORAL
     Route: 065
  3. PULMOZYME [Suspect]
     Active Substance: DORNASE ALFA
     Indication: Cystic fibrosis
     Dosage: NEBULIZE THE CONTENTS OF 1 VIAL(S) TWICE A DAY, AMPUL
     Route: 065
  4. PULMOZYME [Suspect]
     Active Substance: DORNASE ALFA
     Indication: Seasonal allergy
  5. PULMOZYME [Suspect]
     Active Substance: DORNASE ALFA
     Indication: Infective pulmonary exacerbation of cystic fibrosis

REACTIONS (2)
  - Off label use [Unknown]
  - Pneumonia [Recovered/Resolved]
